FAERS Safety Report 17020212 (Version 2)
Quarter: 2020Q1

REPORT INFORMATION
  Report Type: Spontaneous
  Country: US (occurrence: US)
  Receive Date: 20191112
  Receipt Date: 20200110
  Transmission Date: 20200409
  Serious: No
  Sender: FDA-Public Use
  Company Number: US-JNJFOC-20191106063

PATIENT
  Sex: Female

DRUGS (1)
  1. ERDAFITINIB. [Suspect]
     Active Substance: ERDAFITINIB
     Indication: PRODUCT USED FOR UNKNOWN INDICATION
     Route: 048

REACTIONS (2)
  - Nasopharyngitis [Unknown]
  - Blood phosphorus increased [Unknown]
